FAERS Safety Report 16660154 (Version 2)
Quarter: 2019Q3

REPORT INFORMATION
  Report Type: Report from Study
  Country: CN (occurrence: CN)
  Receive Date: 20190802
  Receipt Date: 20190820
  Transmission Date: 20191004
  Serious: Yes (Other)
  Sender: FDA-Public Use
  Company Number: CN-AUROBINDO-AUR-APL-2019-045766

PATIENT

DRUGS (9)
  1. MELPHALAN INJECTION [Suspect]
     Active Substance: MELPHALAN
     Dosage: 20 MICROGRAM (LEFT EYE)
  2. MELPHALAN INJECTION [Suspect]
     Active Substance: MELPHALAN
     Dosage: 30MICROGRAM (RIGHT EYE)
  3. MELPHALAN INJECTION [Suspect]
     Active Substance: MELPHALAN
     Dosage: 20 MICROGRAM (RIGHT EYE)
  4. ATROPINE. [Concomitant]
     Active Substance: ATROPINE
     Indication: PUPIL DILATION PROCEDURE
     Dosage: UNK
     Route: 065
  5. MELPHALAN INJECTION [Suspect]
     Active Substance: MELPHALAN
     Indication: RETINOBLASTOMA
     Dosage: UNK,DILUTED  0.1 ML MEPHALAN SOLUTION 20-40MICROGRAM
  6. MELPHALAN INJECTION [Suspect]
     Active Substance: MELPHALAN
     Dosage: 30MICROGRAM (LEFT EYE)
  7. MELPHALAN INJECTION [Suspect]
     Active Substance: MELPHALAN
     Dosage: 35 MICROGRAM (RIGHT EYE)
  8. MELPHALAN INJECTION [Suspect]
     Active Substance: MELPHALAN
     Dosage: 30MICROGRAM (RIGHT EYE)
  9. MELPHALAN INJECTION [Suspect]
     Active Substance: MELPHALAN
     Dosage: 30MICROGRAM (LEFT EYE)

REACTIONS (9)
  - Iris atrophy [Unknown]
  - Chorioretinal atrophy [Unknown]
  - Eye colour change [Unknown]
  - Product use issue [Unknown]
  - Iris adhesions [Unknown]
  - Hypotony of eye [Unknown]
  - Optic atrophy [Unknown]
  - Retinal depigmentation [Unknown]
  - Product use in unapproved indication [Unknown]
